FAERS Safety Report 7808487-9 (Version None)
Quarter: 2011Q4

REPORT INFORMATION
  Report Type: 
  Country: None (occurrence: None)
  Receive Date: 20111006
  Receipt Date: 20110921
  Transmission Date: 20120403
  Serious: Yes (Hospitalization)
  Sender: FDA-Public Use
  Company Number: FK201101873

PATIENT
  Age: 64 Year
  Sex: Male

DRUGS (2)
  1. CISPLATIN [Suspect]
     Indication: TONGUE NEOPLASM MALIGNANT STAGE UNSPECIFIED
     Dosage: 40 MG
  2. SODIUM THIOSULFATE [Suspect]
     Indication: TONGUE NEOPLASM MALIGNANT STAGE UNSPECIFIED
     Dosage: INTRAVENOUS (NOT OTHERWISE SPECIFIED)
     Route: 042

REACTIONS (5)
  - MOUTH HAEMORRHAGE [None]
  - HAEMOGLOBIN DECREASED [None]
  - LEUKOPENIA [None]
  - VASCULAR PSEUDOANEURYSM [None]
  - STOMATITIS [None]
